FAERS Safety Report 18567965 (Version 1)
Quarter: 2020Q4

REPORT INFORMATION
  Report Type: Spontaneous
  Country: JP (occurrence: JP)
  Receive Date: 20201202
  Receipt Date: 20201202
  Transmission Date: 20210114
  Serious: Yes (Other)
  Sender: FDA-Public Use
  Company Number: JP-GLAXOSMITHKLINE-JP2020235023

PATIENT
  Sex: Male

DRUGS (1)
  1. AVOLVE [Suspect]
     Active Substance: DUTASTERIDE
     Indication: POLLAKIURIA
     Dosage: UNK
     Route: 048

REACTIONS (2)
  - Posterior capsule opacification [Recovered/Resolved]
  - Diplopia [Recovered/Resolved]
